FAERS Safety Report 19824225 (Version 1)
Quarter: 2021Q3

REPORT INFORMATION
  Report Type: Spontaneous
  Country: DE (occurrence: DE)
  Receive Date: 20210913
  Receipt Date: 20210913
  Transmission Date: 20211014
  Serious: Yes (Other)
  Sender: FDA-Public Use
  Company Number: DE-PFIZER INC-202101122744

PATIENT
  Age: 33 Year
  Sex: Female
  Weight: 58 kg

DRUGS (1)
  1. CYTOTEC [Suspect]
     Active Substance: MISOPROSTOL
     Indication: LABOUR INDUCTION
     Dosage: 4 DOSES OF CYTOTEC 50 UG WITHIN 30 HOURS
     Route: 054
     Dates: start: 20151014, end: 20151015

REACTIONS (4)
  - Vulvovaginal injury [Unknown]
  - Off label use [Unknown]
  - Perineal injury [Unknown]
  - Uterine tachysystole [Recovered/Resolved]

NARRATIVE: CASE EVENT DATE: 201510
